FAERS Safety Report 9798726 (Version 2)
Quarter: 2015Q3

REPORT INFORMATION
  Report Type: Spontaneous
  Country: US (occurrence: US)
  Receive Date: 20140106
  Receipt Date: 20150806
  Transmission Date: 20151125
  Serious: No
  Sender: FDA-Public Use
  Company Number: US-GILEAD-2010-0029906

PATIENT
  Age: 69 Year
  Sex: Female
  Weight: 83.01 kg

DRUGS (8)
  1. LEVOTHYROXINE. [Concomitant]
     Active Substance: LEVOTHYROXINE
  2. LETAIRIS [Suspect]
     Active Substance: AMBRISENTAN
     Indication: PULMONARY ARTERIAL HYPERTENSION
     Route: 048
     Dates: start: 20090519
  3. ALDACTONE [Concomitant]
     Active Substance: SPIRONOLACTONE
  4. LASIX [Concomitant]
     Active Substance: FUROSEMIDE
  5. LANOXIN [Concomitant]
     Active Substance: DIGOXIN
  6. CARDENE SR [Concomitant]
     Active Substance: NICARDIPINE HYDROCHLORIDE
  7. CALCIUM +D [Concomitant]
     Active Substance: CALCIUM\VITAMIN D
  8. TEA [Concomitant]
     Active Substance: TEA LEAF

REACTIONS (1)
  - Fatigue [Unknown]
